FAERS Safety Report 7759200-5 (Version None)
Quarter: 2011Q3

REPORT INFORMATION
  Report Type: 
  Country: None (occurrence: None)
  Receive Date: 20110919
  Receipt Date: 20110908
  Transmission Date: 20111222
  Serious: Yes (Life-Threatening, Hospitalization)
  Sender: FDA-Public Use
  Company Number: GB-CELGENEUS-167-CCAZA-11030860

PATIENT
  Sex: Male
  Weight: 68.8 kg

DRUGS (24)
  1. OCTENISAN [Concomitant]
     Dosage: DAILY WASH
     Route: 065
     Dates: start: 20110823
  2. FLOXACILLIN SODIUM [Concomitant]
     Indication: INFECTION PROPHYLAXIS
     Dosage: 40 MILLIGRAM
     Route: 065
     Dates: start: 20110509
  3. BISOPROLOL FUMARATE [Concomitant]
     Indication: HYPERTENSION
     Dosage: 5 MILLIGRAM
     Route: 048
     Dates: start: 20100101
  4. ATORVASTATIN [Concomitant]
     Dosage: 40 MILLIGRAM
     Route: 048
     Dates: start: 20110101
  5. CLOPIDOGREL [Concomitant]
     Indication: THROMBOSIS PROPHYLAXIS
     Dosage: 75 MILLIGRAM
     Route: 065
     Dates: start: 20110101, end: 20110509
  6. CODEINE SULFATE [Concomitant]
     Dosage: 30-60MG
     Route: 065
     Dates: start: 20110628
  7. MEROPENEM [Concomitant]
     Indication: FEBRILE INFECTION
     Dosage: 3 GRAM
     Route: 065
     Dates: start: 20110717, end: 20110728
  8. ISOSORBIDE MONONITRATE [Concomitant]
     Indication: ANGINA PECTORIS
     Dosage: 60 MILLIGRAM
     Route: 048
     Dates: start: 20110101
  9. BACTROBAN [Concomitant]
     Route: 061
     Dates: start: 20110723
  10. AZACITIDINE [Suspect]
     Dosage: 140 MILLIGRAM/SQ. METER
     Route: 058
     Dates: start: 20110104, end: 20110515
  11. FLUCONAZOLE [Concomitant]
     Indication: ANTIFUNGAL PROPHYLAXIS
     Dosage: 400 MILLIGRAM
     Route: 048
     Dates: start: 20110104
  12. SANDO K [Concomitant]
     Dosage: 6 TABLET
     Route: 065
     Dates: start: 20110831
  13. ASPIRIN [Concomitant]
     Indication: THROMBOSIS PROPHYLAXIS
     Dosage: 75 MILLIGRAM
     Route: 065
     Dates: start: 20110101, end: 20110509
  14. AZACITIDINE [Suspect]
     Dosage: 135 MILLIGRAM/SQ. METER
     Route: 058
     Dates: start: 20110606
  15. AMLODIPINE [Concomitant]
     Indication: HYPERTENSION
     Dosage: 5 MILLIGRAM
     Route: 065
     Dates: start: 20110825
  16. METOCLOPRAMIDE [Concomitant]
     Dosage: 60 MILLIGRAM
     Route: 065
     Dates: start: 20110509, end: 20110515
  17. ONDANSETRON [Concomitant]
     Dosage: 16 MILLIGRAM
     Route: 065
     Dates: start: 20110704
  18. AZACITIDINE [Suspect]
     Route: 058
     Dates: start: 20110818
  19. AMOXICILLIN AND CLAVULANATE POTASSIUM [Concomitant]
     Indication: URINARY TRACT INFECTION
     Dosage: 1875 MILLIGRAM
     Route: 065
     Dates: start: 20110825, end: 20110830
  20. ANUSOL [Concomitant]
     Indication: HAEMORRHOIDS
     Dosage: 4 TOPICAL PREPARATION
     Route: 061
     Dates: start: 20110830
  21. RAMIPRIL [Concomitant]
     Indication: HYPERTENSION
     Dosage: 2.5 MILLIGRAM
     Route: 065
     Dates: start: 20110101
  22. ACYCLOVIR [Concomitant]
     Indication: PROPHYLAXIS
     Dosage: 800 MILLIGRAM
     Route: 048
     Dates: start: 20110104
  23. CIPROFLOXACIN [Concomitant]
     Indication: PROPHYLAXIS
     Dosage: 1500 MILLIGRAM
     Route: 048
     Dates: start: 20110509
  24. ONDANSETRON [Concomitant]
     Dosage: 16 MILLIGRAM
     Route: 065
     Dates: start: 20110509, end: 20110515

REACTIONS (3)
  - SUBDURAL HAEMATOMA [None]
  - SURGERY [None]
  - DISSEMINATED INTRAVASCULAR COAGULATION [None]
